FAERS Safety Report 11081786 (Version 1)
Quarter: 2015Q2

REPORT INFORMATION
  Report Type: Spontaneous
  Country: US (occurrence: US)
  Receive Date: 20150501
  Receipt Date: 20150501
  Transmission Date: 20150821
  Serious: No
  Sender: FDA-Public Use
  Company Number: US-PFIZER INC-2015144432

PATIENT
  Age: 37 Year
  Sex: Female
  Weight: 73 kg

DRUGS (7)
  1. MULTIVITAMIN [Concomitant]
     Active Substance: VITAMINS
     Dosage: 1 DF, 1X/DAY
  2. CELECOXIB. [Suspect]
     Active Substance: CELECOXIB
     Indication: OSTEOARTHRITIS
     Dosage: UNK
     Dates: start: 201503
  3. MEDROL [Interacting]
     Active Substance: METHYLPREDNISOLONE
     Indication: ENDODONTIC PROCEDURE
     Dosage: UNK
     Dates: start: 201503, end: 201503
  4. AMOXICILLIN. [Interacting]
     Active Substance: AMOXICILLIN
     Indication: ENDODONTIC PROCEDURE
     Dosage: UNK
     Dates: start: 201503, end: 201503
  5. VITAMIN B3 (NICOTINIC ACID AMIDE) [Concomitant]
     Indication: VITAMIN B COMPLEX DEFICIENCY
  6. TRIVORA [Concomitant]
     Active Substance: ETHINYL ESTRADIOL\LEVONORGESTREL
     Indication: CONTRACEPTION
     Dosage: 1 DF, 1X/DAY
  7. VITAMIN D3 [Concomitant]
     Active Substance: CHOLECALCIFEROL
     Indication: HYPOVITAMINOSIS
     Dosage: 5000 IU, 1X/DAY

REACTIONS (4)
  - Drug interaction [Unknown]
  - Urticaria [Recovered/Resolved]
  - Rash [Recovered/Resolved]
  - Pruritus [Recovered/Resolved]

NARRATIVE: CASE EVENT DATE: 201503
